FAERS Safety Report 4295427-5 (Version None)
Quarter: 2004Q1

REPORT INFORMATION
  Report Type: 
  Country: None (occurrence: None)
  Receive Date: 20040212
  Receipt Date: 20040130
  Transmission Date: 20041129
  Serious: Yes (Other)
  Sender: FDA-Public Use
  Company Number: 2003-BP-00051BP

PATIENT
  Age: 70 Year
  Sex: Female

DRUGS (6)
  1. MICARDIS [Suspect]
     Indication: CEREBROVASCULAR ACCIDENT
     Dosage: PO
     Route: 048
     Dates: end: 20021230
  2. MICARDIS [Suspect]
     Indication: PROPHYLAXIS
     Dosage: PO
     Route: 048
     Dates: end: 20021230
  3. AMLODIPINE [Suspect]
     Dates: end: 20020101
  4. FUROSEMIDE [Concomitant]
  5. DIGOXIN [Concomitant]
  6. AAS (ACETYLSALICYLIC ACID) [Concomitant]

REACTIONS (3)
  - ASTHENIA [None]
  - BLOOD PRESSURE SYSTOLIC DECREASED [None]
  - SYNCOPE [None]
